FAERS Safety Report 5159499-8 (Version None)
Quarter: 2006Q4

REPORT INFORMATION
  Report Type: 
  Country: None (occurrence: None)
  Receive Date: 20061129
  Receipt Date: 20061120
  Transmission Date: 20070319
  Serious: Yes (Other)
  Sender: FDA-Public Use
  Company Number: ES-JNJFOC-20061104572

PATIENT
  Sex: Female

DRUGS (5)
  1. REMICADE [Suspect]
     Indication: RHEUMATOID ARTHRITIS
     Route: 042
  2. METHOTREXATE [Concomitant]
     Route: 065
  3. NSAIDS [Concomitant]
     Route: 065
  4. CALCIUM [Concomitant]
     Indication: OSTEOPENIA
     Route: 065
  5. RISENDRONATE [Concomitant]
     Indication: OSTEOPENIA
     Route: 065

REACTIONS (1)
  - BASAL CELL CARCINOMA [None]
